FAERS Safety Report 5213577-3 (Version None)
Quarter: 2007Q1

REPORT INFORMATION
  Report Type: 
  Country: None (occurrence: None)
  Receive Date: 20070119
  Receipt Date: 20070110
  Transmission Date: 20070707
  Serious: Yes (Hospitalization, Other)
  Sender: FDA-Public Use
  Company Number: DE-SHR-DE-2006-029675

PATIENT
  Age: 33 Year
  Sex: Female
  Weight: 55 kg

DRUGS (1)
  1. MIRENA [Suspect]
     Indication: CONTRACEPTION
     Dosage: 20 A?G/DAY, CONT
     Route: 015
     Dates: start: 20060207, end: 20061002

REACTIONS (5)
  - EPIGASTRIC DISCOMFORT [None]
  - IUD MIGRATION [None]
  - OVARIAN CYST [None]
  - PAIN [None]
  - VAGINAL HAEMORRHAGE [None]
